FAERS Safety Report 6734676-0 (Version None)
Quarter: 2010Q2

REPORT INFORMATION
  Report Type: 
  Country: None (occurrence: None)
  Receive Date: 20100519
  Receipt Date: 20100519
  Transmission Date: 20101027
  Serious: Yes (Other)
  Sender: FDA-Public Use
  Company Number: None

PATIENT
  Sex: Male
  Weight: 97.7 kg

DRUGS (1)
  1. METACLOPROMIDE 10 MG WATSON [Suspect]
     Indication: GASTROOESOPHAGEAL REFLUX DISEASE
     Dosage: REGLAN - 10MG. Q4 P.O.
     Route: 048
     Dates: start: 20010101

REACTIONS (3)
  - GROWTH HORMONE DEFICIENCY [None]
  - HYPERPROLACTINAEMIA [None]
  - PITUITARY TUMOUR BENIGN [None]
